FAERS Safety Report 4803992-1 (Version None)
Quarter: 2005Q3

REPORT INFORMATION
  Report Type: 
  Country: None (occurrence: None)
  Receive Date: 20050920
  Receipt Date: 20050721
  Transmission Date: 20060218
  Serious: No
  Sender: FDA-Public Use
  Company Number: US-YAMANOUCHI-YPA20050381

PATIENT
  Sex: Female

DRUGS (7)
  1. VESICARE [Suspect]
     Indication: HYPERTONIC BLADDER
     Dosage: 5 MG QD PO
     Route: 048
     Dates: start: 20050701
  2. NEXIUM [Concomitant]
  3. FOLTX [Concomitant]
  4. LIPITOR [Concomitant]
  5. CELEXA [Concomitant]
  6. OGEN [Concomitant]
  7. GLUCOSAMINE/CHONDROITIN [Concomitant]

REACTIONS (1)
  - BREAST PAIN [None]
